FAERS Safety Report 12468037 (Version 3)
Quarter: 2017Q3

REPORT INFORMATION
  Report Type: Report from Study
  Country: US (occurrence: US)
  Receive Date: 20160615
  Receipt Date: 20170801
  Transmission Date: 20171127
  Serious: Yes (Other)
  Sender: FDA-Public Use
  Company Number: PHEH2016US014288

PATIENT
  Age: 60 Year
  Sex: Female

DRUGS (2)
  1. AMPYRA [Concomitant]
     Active Substance: DALFAMPRIDINE
     Indication: PRODUCT USED FOR UNKNOWN INDICATION
     Dosage: UNK
     Route: 065
  2. GILENYA [Suspect]
     Active Substance: FINGOLIMOD HYDROCHLORIDE
     Indication: MULTIPLE SCLEROSIS
     Dosage: UNK UNK, QD
     Route: 048
     Dates: start: 20160502, end: 20170701

REACTIONS (7)
  - Rash [Recovered/Resolved]
  - Gait inability [Unknown]
  - Rash papular [Unknown]
  - Nausea [Unknown]
  - Herpes zoster [Unknown]
  - Cerebrovascular accident [Unknown]
  - Rash pruritic [Unknown]

NARRATIVE: CASE EVENT DATE: 20160530
